FAERS Safety Report 12384098 (Version 3)
Quarter: 2016Q3

REPORT INFORMATION
  Report Type: Spontaneous
  Country: US (occurrence: US)
  Receive Date: 20160519
  Receipt Date: 20160909
  Transmission Date: 20161109
  Serious: Yes (Hospitalization, Other)
  Sender: FDA-Public Use
  Company Number: US-ASTRAZENECA-2016SE51431

PATIENT
  Age: 15201 Day
  Sex: Female
  Weight: 129 kg

DRUGS (8)
  1. NOLVADEX [Concomitant]
     Active Substance: TAMOXIFEN CITRATE
     Dosage: 20.0MG UNKNOWN
  2. ZOLADEX [Suspect]
     Active Substance: GOSERELIN ACETATE
     Indication: BREAST CANCER
     Route: 058
     Dates: start: 20141016, end: 20151214
  3. MOTRIN [Concomitant]
     Active Substance: IBUPROFEN
     Dosage: 800.0MG UNKNOWN
  4. TAMOXIFEN [Suspect]
     Active Substance: TAMOXIFEN
     Indication: BREAST CANCER FEMALE
     Route: 048
  5. SOLIFENACIN [Suspect]
     Active Substance: SOLIFENACIN
     Indication: HYPERTONIC BLADDER
     Route: 048
     Dates: start: 20150831, end: 20160307
  6. ALBUTEROL HFA [Concomitant]
     Active Substance: ALBUTEROL SULFATE
  7. VIGAMOX [Concomitant]
     Active Substance: MOXIFLOXACIN HYDROCHLORIDE
     Dosage: 0.5% UNKNOWN
  8. OXYBUTYNIN [Suspect]
     Active Substance: OXYBUTYNIN
     Indication: HYPERTONIC BLADDER
     Route: 048
     Dates: start: 20160308

REACTIONS (8)
  - Dry mouth [Recovering/Resolving]
  - Constipation [Recovered/Resolved]
  - Hypertonic bladder [Unknown]
  - Headache [Recovering/Resolving]
  - Uterine haemorrhage [Recovered/Resolved]
  - Somnolence [Recovering/Resolving]
  - Nausea [Recovered/Resolved]
  - Vision blurred [Recovering/Resolving]

NARRATIVE: CASE EVENT DATE: 20150913
